FAERS Safety Report 17485931 (Version 1)
Quarter: 2020Q1

REPORT INFORMATION
  Report Type: Spontaneous
  Country: US (occurrence: US)
  Receive Date: 20200303
  Receipt Date: 20200303
  Transmission Date: 20200409
  Serious: No
  Sender: FDA-Public Use
  Company Number: US-TEVA-2020-US-1192908

PATIENT

DRUGS (1)
  1. SUMATRIPTAN SUCCINATE TEVA [Suspect]
     Active Substance: SUMATRIPTAN SUCCINATE
     Dosage: 6 MG IN 5 ML
     Route: 065

REACTIONS (3)
  - Anxiety [Unknown]
  - Device malfunction [Unknown]
  - Injection site haemorrhage [Unknown]
